FAERS Safety Report 9200577 (Version 1)
Quarter: 2013Q1

REPORT INFORMATION
  Report Type: Spontaneous
  Country: US (occurrence: US)
  Receive Date: 20130329
  Receipt Date: 20130329
  Transmission Date: 20140127
  Serious: No
  Sender: FDA-Public Use
  Company Number: US-PFIZER INC-2013099849

PATIENT
  Age: 66 Year
  Sex: Female
  Weight: 45.8 kg

DRUGS (2)
  1. PREMARIN VAGINAL CREAM [Suspect]
     Indication: VULVOVAGINAL DRYNESS
     Dosage: UNK
     Route: 067
  2. AMERGE [Concomitant]
     Indication: HEADACHE
     Dosage: UNK, AS NEEDED

REACTIONS (2)
  - Vulvovaginal pruritus [Unknown]
  - Vulvovaginal burning sensation [Unknown]
